FAERS Safety Report 8997185 (Version 1)
Quarter: 2013Q1

REPORT INFORMATION
  Report Type: Report from Study
  Country: US (occurrence: US)
  Receive Date: 20130104
  Receipt Date: 20130104
  Transmission Date: 20140127
  Serious: Yes (Other)
  Sender: FDA-Public Use
  Company Number: US-JNJFOC-20121212796

PATIENT
  Age: 51 None
  Sex: Male
  Weight: 81.65 kg

DRUGS (2)
  1. SIMPONI [Suspect]
     Indication: ANKYLOSING SPONDYLITIS
     Route: 058
     Dates: start: 201208
  2. TYLENOL [Concomitant]

REACTIONS (10)
  - Nephrolithiasis [Unknown]
  - Bronchitis [Unknown]
  - Drug dose omission [Not Recovered/Not Resolved]
  - Incorrect storage of drug [Not Recovered/Not Resolved]
  - Device failure [Not Recovered/Not Resolved]
  - Fatigue [Not Recovered/Not Resolved]
  - Pain [Not Recovered/Not Resolved]
  - Therapeutic response decreased [Not Recovered/Not Resolved]
  - Asthenia [Not Recovered/Not Resolved]
  - Headache [Not Recovered/Not Resolved]
